FAERS Safety Report 10506310 (Version 1)
Quarter: 2014Q4

REPORT INFORMATION
  Report Type: Spontaneous
  Country: US (occurrence: US)
  Receive Date: 20141009
  Receipt Date: 20141009
  Transmission Date: 20150528
  Serious: Yes (Hospitalization)
  Sender: FDA-Public Use
  Company Number: US-UNITED THERAPEUTICS-UNT-2014-008756

PATIENT
  Age: 60 Year
  Sex: Female
  Weight: 79.37 kg

DRUGS (1)
  1. ORENITRAM [Suspect]
     Active Substance: TREPROSTINIL
     Indication: COR PULMONALE CHRONIC
     Dosage: 4 MG, BID
     Route: 048
     Dates: start: 20140625

REACTIONS (3)
  - Malaise [Unknown]
  - Vomiting [Unknown]
  - Therapy cessation [Unknown]

NARRATIVE: CASE EVENT DATE: 201409
